FAERS Safety Report 11916352 (Version 1)
Quarter: 2016Q1

REPORT INFORMATION
  Report Type: Report from Study
  Country: KR (occurrence: KR)
  Receive Date: 20160114
  Receipt Date: 20160114
  Transmission Date: 20160526
  Serious: Yes (Death)
  Sender: FDA-Public Use
  Company Number: KR-OTSUKA-2016_001130

PATIENT
  Age: 39 Year
  Sex: Female

DRUGS (36)
  1. GASOCOL SOLUTION [Concomitant]
     Indication: HYPERVOLAEMIA
  2. OLIMEL [Concomitant]
     Active Substance: AMINO ACIDS\DEXTROSE\SOYBEAN OIL
     Indication: HYPONATRAEMIA
     Dosage: 1500 ML, UNK
     Route: 042
     Dates: start: 20140512, end: 20140524
  3. TOLVAPTAN [Suspect]
     Active Substance: TOLVAPTAN
     Indication: HYPERVOLAEMIA
  4. CITOPCIN INFU BAG [Concomitant]
     Indication: HYPERVOLAEMIA
  5. PHENIRAMINE [Concomitant]
     Active Substance: PHENIRAMINE
     Indication: HYPERVOLAEMIA
  6. DOPAMINE HCL [Concomitant]
     Active Substance: DOPAMINE HYDROCHLORIDE
     Indication: HYPONATRAEMIA
     Dosage: 400 MG, UNK
     Route: 042
     Dates: start: 20140524, end: 20140525
  7. HANLIM FENTANYL [Concomitant]
     Indication: HYPERVOLAEMIA
  8. GASOCOL SOLUTION [Concomitant]
     Indication: HYPONATRAEMIA
     Dosage: 10 ML, UNK
     Route: 042
     Dates: start: 20140514, end: 20140514
  9. HYSPAN AMP [Concomitant]
     Indication: HYPONATRAEMIA
     Dosage: 20 MG, UNK
     Route: 042
     Dates: start: 20140514, end: 20140514
  10. DOPAMINE HCL [Concomitant]
     Active Substance: DOPAMINE HYDROCHLORIDE
     Indication: HYPERVOLAEMIA
  11. MUCOSTEN [Concomitant]
     Indication: HYPONATRAEMIA
     Dosage: 90 MG, UNK
     Route: 042
     Dates: end: 20140523
  12. METRONIDAZOLE LLY INFU BAG [Concomitant]
     Indication: HYPONATRAEMIA
     Dosage: 1500 MG, UNK
     Route: 042
     Dates: start: 20140514, end: 20140519
  13. VANCOCIN CP [Concomitant]
     Indication: HYPERVOLAEMIA
  14. MACPERAN [Concomitant]
     Indication: HYPONATRAEMIA
     Dosage: 20 MG, UNK
     Route: 042
     Dates: start: 20140512, end: 20140525
  15. MIDAZOLAM [Concomitant]
     Active Substance: MIDAZOLAM\MIDAZOLAM HYDROCHLORIDE
     Indication: HYPONATRAEMIA
     Dosage: 5 MG, UNK
     Route: 042
     Dates: start: 20140514, end: 20140514
  16. PETHIDINE HCL [Concomitant]
     Indication: HYPERVOLAEMIA
  17. MUCOSTEN [Concomitant]
     Indication: HYPERVOLAEMIA
  18. METRONIDAZOLE LLY INFU BAG [Concomitant]
     Indication: HYPERVOLAEMIA
  19. MACPERAN [Concomitant]
     Indication: HYPERVOLAEMIA
  20. PHENIRAMINE [Concomitant]
     Active Substance: PHENIRAMINE
     Indication: HYPONATRAEMIA
     Dosage: 4 MG, UNK
     Route: 042
     Dates: start: 20140514, end: 20140522
  21. GASTER INJ [Concomitant]
     Indication: HYPONATRAEMIA
     Dosage: 40 MG, UNK
     Route: 042
     Dates: start: 20140512, end: 20140523
  22. CALCIUM GLUCONATE. [Concomitant]
     Active Substance: CALCIUM GLUCONATE
     Indication: HYPONATRAEMIA
     Dosage: 20 ML, UNK
     Route: 042
     Dates: start: 20140517, end: 20140520
  23. DICKNOL [Concomitant]
     Indication: HYPONATRAEMIA
     Dosage: 90 MG, UNK
     Route: 042
     Dates: start: 20140513, end: 20140513
  24. OLIMEL [Concomitant]
     Active Substance: AMINO ACIDS\DEXTROSE\SOYBEAN OIL
     Indication: HYPERVOLAEMIA
  25. PETHIDINE HCL [Concomitant]
     Indication: HYPONATRAEMIA
     Dosage: 25 MG, UNK
     Route: 042
     Dates: start: 20140512, end: 20140525
  26. MAXIPIME BORYUNG [Concomitant]
     Indication: HYPERVOLAEMIA
  27. VANCOCIN CP [Concomitant]
     Indication: HYPONATRAEMIA
     Dosage: 1500 MG, UNK
     Route: 042
     Dates: start: 20140519, end: 20140523
  28. CITOPCIN INFU BAG [Concomitant]
     Indication: HYPONATRAEMIA
     Dosage: 400 MG, UNK
     Route: 042
     Dates: start: 20140512, end: 20140514
  29. TOLVAPTAN [Suspect]
     Active Substance: TOLVAPTAN
     Indication: HYPONATRAEMIA
     Dosage: 15 MG, QD
     Route: 048
     Dates: start: 20140512, end: 20140524
  30. MAXIPIME BORYUNG [Concomitant]
     Indication: HYPONATRAEMIA
     Dosage: 2 G, UNK
     Route: 042
     Dates: start: 20140514, end: 20140519
  31. HYSPAN AMP [Concomitant]
     Indication: HYPERVOLAEMIA
  32. GASTER INJ [Concomitant]
     Indication: HYPERVOLAEMIA
  33. CALCIUM GLUCONATE. [Concomitant]
     Active Substance: CALCIUM GLUCONATE
     Indication: HYPERVOLAEMIA
  34. MIDAZOLAM [Concomitant]
     Active Substance: MIDAZOLAM\MIDAZOLAM HYDROCHLORIDE
     Indication: HYPERVOLAEMIA
  35. DICKNOL [Concomitant]
     Indication: HYPERVOLAEMIA
  36. HANLIM FENTANYL [Concomitant]
     Indication: HYPONATRAEMIA
     Dosage: 0.025 MG, UNK
     Route: 042
     Dates: start: 20140519, end: 20140519

REACTIONS (1)
  - Death [Fatal]

NARRATIVE: CASE EVENT DATE: 20140524
